FAERS Safety Report 6496230-8 (Version None)
Quarter: 2009Q4

REPORT INFORMATION
  Report Type: 
  Country: None (occurrence: None)
  Receive Date: 20091214
  Receipt Date: 20091028
  Transmission Date: 20100525
  Serious: No
  Sender: FDA-Public Use
  Company Number: US-BRISTOL-MYERS SQUIBB COMPANY-14835219

PATIENT
  Age: 7 Year
  Sex: Male
  Weight: 22 kg

DRUGS (7)
  1. ABILIFY [Suspect]
     Indication: AGGRESSION
     Route: 048
     Dates: start: 20090801
  2. VYVANSE [Suspect]
     Indication: ATTENTION DEFICIT/HYPERACTIVITY DISORDER
     Dosage: INCRD 130MG(100MGAM-30MG PM),2008-MAY09;DECREASED 100MG(70MG AM-30MG PM)MAY09-14OCT09;15OCT09,30MG;
     Dates: end: 20080101
  3. RISPERDAL [Suspect]
     Indication: AGGRESSION
     Route: 048
     Dates: end: 20090801
  4. SEROQUEL [Suspect]
     Dosage: TABLET;DOSE INCREASED TO 100MG
     Route: 048
     Dates: start: 20080101
  5. RITALIN [Concomitant]
     Dosage: TABLET
  6. STRATTERA [Concomitant]
  7. CELEXA [Concomitant]
     Dosage: TABS

REACTIONS (7)
  - AGGRESSION [None]
  - BLOOD GLUCOSE DECREASED [None]
  - HALLUCINATION [None]
  - HYPOPHAGIA [None]
  - OVERDOSE [None]
  - PARANOIA [None]
  - TIC [None]
